FAERS Safety Report 17900226 (Version 1)
Quarter: 2020Q2

REPORT INFORMATION
  Report Type: Spontaneous
  Country: US (occurrence: US)
  Receive Date: 20200615
  Receipt Date: 20200615
  Transmission Date: 20200714
  Serious: Yes (Hospitalization)
  Sender: FDA-Public Use
  Company Number: None

PATIENT
  Sex: Male

DRUGS (38)
  1. FEBUXOSTAT. [Concomitant]
     Active Substance: FEBUXOSTAT
  2. FLUOROURACIL. [Concomitant]
     Active Substance: FLUOROURACIL
  3. POLYETH GLYC POWDER [Concomitant]
  4. INDOMETHACIN. [Concomitant]
     Active Substance: INDOMETHACIN
  5. METRONIDAZOL [Concomitant]
     Active Substance: METRONIDAZOLE
  6. OSELTAMVIR [Concomitant]
     Active Substance: OSELTAMIVIR
  7. ACCU-CHEK [Concomitant]
  8. CEPHALEXIN. [Concomitant]
     Active Substance: CEPHALEXIN
  9. METOPROLOL TARTRATE. [Concomitant]
     Active Substance: METOPROLOL TARTRATE
  10. PREGABALIN. [Concomitant]
     Active Substance: PREGABALIN
  11. ZOLPIDEM [Concomitant]
     Active Substance: ZOLPIDEM TARTRATE
  12. ALPAZOLAM [Concomitant]
     Active Substance: ALPRAZOLAM
  13. A-HYDROCORT [Concomitant]
     Active Substance: HYDROCORTISONE SODIUM SUCCINATE
  14. METFORMIN [Concomitant]
     Active Substance: METFORMIN HYDROCHLORIDE
  15. CONTOUR [Concomitant]
  16. GAVILYTE - C [Concomitant]
     Active Substance: POLYETHYLENE GLYCOL 3350\POTASSIUM CHLORIDE\SODIUM BICARBONATE\SODIUM CHLORIDE\SODIUM SULFATE ANHYDROUS
  17. HYDROCHLOROT [Concomitant]
     Active Substance: HYDROCHLOROTHIAZIDE
  18. LEVOFLOXACIN. [Concomitant]
     Active Substance: LEVOFLOXACIN
  19. METHYLPRED [Concomitant]
     Active Substance: METHYLPREDNISOLONE
  20. VALACYCLOVIR [Concomitant]
     Active Substance: VALACYCLOVIR HYDROCHLORIDE
  21. INLYTA [Suspect]
     Active Substance: AXITINIB
     Indication: RENAL CANCER
     Route: 048
     Dates: start: 202004
  22. AMOX/K CLAV [Concomitant]
     Active Substance: AMOXICILLIN\CLAVULANATE POTASSIUM
  23. FINASTERIDE. [Concomitant]
     Active Substance: FINASTERIDE
  24. GLIPIZIDE. [Concomitant]
     Active Substance: GLIPIZIDE
  25. OXYCODONE AND ACETAMINOPHEN [Concomitant]
     Active Substance: ACETAMINOPHEN\OXYCODONE HYDROCHLORIDE
  26. SOFT CLIX MIS LANCETS [Concomitant]
  27. MAG OXIDE [Concomitant]
     Active Substance: MAGNESIUM OXIDE
  28. PEG-3350/KCL [Concomitant]
  29. TAMSULOSIN [Concomitant]
     Active Substance: TAMSULOSIN
  30. MICROLET MIS LANCETS [Concomitant]
  31. ALLOPURINAL [Concomitant]
     Active Substance: ALLOPURINOL
  32. BENZONATATE. [Concomitant]
     Active Substance: BENZONATATE
  33. CLONIDINE. [Concomitant]
     Active Substance: CLONIDINE
  34. LISINOPRIL. [Concomitant]
     Active Substance: LISINOPRIL
  35. LOSARTAN. [Concomitant]
     Active Substance: LOSARTAN
  36. LUMIGAN [Concomitant]
     Active Substance: BIMATOPROST
  37. ROSUVASTATIN. [Concomitant]
     Active Substance: ROSUVASTATIN
  38. LANCETS [Concomitant]
     Active Substance: DEVICE

REACTIONS (3)
  - Hypotension [None]
  - Haematochezia [None]
  - Therapy interrupted [None]
